FAERS Safety Report 12398725 (Version 1)
Quarter: 2016Q2

REPORT INFORMATION
  Report Type: Spontaneous
  Country: FR (occurrence: FR)
  Receive Date: 20160524
  Receipt Date: 20160524
  Transmission Date: 20160815
  Serious: Yes (Hospitalization)
  Sender: FDA-Public Use
  Company Number: FR-TEVA-661650ISR

PATIENT
  Age: 88 Year
  Sex: Female

DRUGS (5)
  1. SODIUM PRAVASTATINE [Suspect]
     Active Substance: PRAVASTATIN SODIUM
     Route: 048
  2. HYDROXYZINE HYDROCHLORIDE. [Suspect]
     Active Substance: HYDROXYZINE HYDROCHLORIDE
     Route: 048
  3. DIFFU K [Suspect]
     Active Substance: POTASSIUM CHLORIDE
     Route: 048
  4. GLIMEPIRIDE. [Suspect]
     Active Substance: GLIMEPIRIDE
     Route: 048
  5. MONAZOL 2% [Suspect]
     Active Substance: SERTACONAZOLE
     Route: 003

REACTIONS (1)
  - Eczema [Unknown]

NARRATIVE: CASE EVENT DATE: 20150922
